FAERS Safety Report 6792902-6 (Version None)
Quarter: 2010Q2

REPORT INFORMATION
  Report Type: 
  Country: None (occurrence: None)
  Receive Date: 20100624
  Receipt Date: 20081129
  Transmission Date: 20101027
  Serious: Yes (Other)
  Sender: FDA-Public Use
  Company Number: US-PFIZER INC-2008089863

PATIENT
  Sex: Female
  Weight: 52.154 kg

DRUGS (2)
  1. GEODON [Suspect]
     Dosage: NA EVERY NA DAYS
     Route: 048
  2. ALL OTHER THERAPEUTIC PRODUCTS [Concomitant]

REACTIONS (1)
  - TARDIVE DYSKINESIA [None]
